FAERS Safety Report 9174625 (Version 1)
Quarter: 2013Q1

REPORT INFORMATION
  Report Type: Spontaneous
  Country: US (occurrence: US)
  Receive Date: 20130320
  Receipt Date: 20130320
  Transmission Date: 20140127
  Serious: No
  Sender: FDA-Public Use
  Company Number: US-TEVA-392776USA

PATIENT
  Sex: Male

DRUGS (2)
  1. AMRIX [Suspect]
  2. ALCOHOL [Interacting]

REACTIONS (3)
  - Poor quality sleep [Not Recovered/Not Resolved]
  - Somnolence [Recovered/Resolved]
  - Drug ineffective [Unknown]
